FAERS Safety Report 7353007-9 (Version None)
Quarter: 2011Q1

REPORT INFORMATION
  Report Type: 
  Country: None (occurrence: None)
  Receive Date: 20110315
  Receipt Date: 20110308
  Transmission Date: 20110831
  Serious: Yes (Hospitalization)
  Sender: FDA-Public Use
  Company Number: A0897807A

PATIENT
  Age: 70 Year
  Sex: Female
  Weight: 102.3 kg

DRUGS (3)
  1. AVANDIA [Suspect]
     Indication: DIABETES MELLITUS
     Dosage: 4MG PER DAY
     Route: 048
     Dates: start: 20000217, end: 20100908
  2. SYNTHROID [Concomitant]
  3. SYNTHROID [Concomitant]

REACTIONS (2)
  - HYPERLIPIDAEMIA [None]
  - HEART INJURY [None]
